FAERS Safety Report 7599790-9 (Version None)
Quarter: 2011Q3

REPORT INFORMATION
  Report Type: 
  Country: None (occurrence: None)
  Receive Date: 20110711
  Receipt Date: 20110629
  Transmission Date: 20111222
  Serious: Yes (Other)
  Sender: FDA-Public Use
  Company Number: US-BAYER-201040158NA

PATIENT
  Age: 59 Year
  Sex: Female

DRUGS (1)
  1. CLIMARA PRO [Suspect]
     Indication: HOT FLUSH
     Dosage: TOTAL DAILY DOSE: 0.045MG/0.015MG/DAY
     Route: 062
     Dates: start: 20100601

REACTIONS (8)
  - MOOD ALTERED [None]
  - MEMORY IMPAIRMENT [None]
  - APPLICATION SITE ERYTHEMA [None]
  - VAGINAL HAEMORRHAGE [None]
  - UTERINE DILATION AND CURETTAGE [None]
  - THINKING ABNORMAL [None]
  - RASH PAPULAR [None]
  - INSOMNIA [None]
